FAERS Safety Report 16969751 (Version 1)
Quarter: 2019Q4

REPORT INFORMATION
  Report Type: Spontaneous
  Country: CA (occurrence: CA)
  Receive Date: 20191029
  Receipt Date: 20191029
  Transmission Date: 20200122
  Serious: Yes (Life-Threatening, Other)
  Sender: FDA-Public Use
  Company Number: CA-PFIZER INC-2019464589

PATIENT
  Age: 66 Year
  Sex: Female
  Weight: 73 kg

DRUGS (1)
  1. CHAMPIX [Suspect]
     Active Substance: VARENICLINE TARTRATE
     Indication: SMOKING CESSATION THERAPY
     Dosage: 0.5 MG, 2X/DAY
     Route: 048

REACTIONS (4)
  - Suicidal ideation [Recovered/Resolved]
  - Anger [Recovered/Resolved]
  - Depression [Recovered/Resolved]
  - Self-injurious ideation [Recovered/Resolved]
